FAERS Safety Report 15670288 (Version 1)
Quarter: 2018Q4

REPORT INFORMATION
  Report Type: Spontaneous
  Country: US (occurrence: US)
  Receive Date: 20181129
  Receipt Date: 20181129
  Transmission Date: 20190205
  Serious: Yes (Other)
  Sender: FDA-Public Use
  Company Number: US-SAKK-2018SA313983AA

PATIENT
  Age: 44 Year
  Sex: Female

DRUGS (1)
  1. LANTUS SOLOSTAR [Suspect]
     Active Substance: INSULIN GLARGINE
     Indication: TYPE 2 DIABETES MELLITUS
     Dosage: 14 UNITS IN MORNING AND 16 UNITS IN NIGHT
     Route: 065

REACTIONS (5)
  - Injection site haemorrhage [Unknown]
  - Device issue [Unknown]
  - Inappropriate schedule of product administration [Unknown]
  - Visual impairment [Recovering/Resolving]
  - Neuropathy peripheral [Recovering/Resolving]
